FAERS Safety Report 15177896 (Version 3)
Quarter: 2018Q3

REPORT INFORMATION
  Report Type: Report from Study
  Country: US (occurrence: US)
  Receive Date: 20180720
  Receipt Date: 20180808
  Transmission Date: 20181010
  Serious: Yes (Hospitalization)
  Sender: FDA-Public Use
  Company Number: US-TESARO, INC.-US-2018TSO03461

PATIENT
  Age: 59 Year
  Sex: Male
  Weight: 95.24 kg

DRUGS (16)
  1. IBUPROFEN. [Concomitant]
     Active Substance: IBUPROFEN
     Indication: PAIN
     Dosage: 200 MG, PRN
     Route: 048
  2. TRAMADOL. [Concomitant]
     Active Substance: TRAMADOL
     Indication: TUMOUR PAIN
     Dosage: 50 MG, PRN
     Route: 048
  3. PROCHLORPERAZINE. [Concomitant]
     Active Substance: PROCHLORPERAZINE
     Indication: PROPHYLAXIS OF NAUSEA AND VOMITING
     Dosage: 10 MG, PRN
     Route: 048
  4. MIRTAZAPINE. [Concomitant]
     Active Substance: MIRTAZAPINE
     Indication: DECREASED APPETITE
     Dosage: 7.5 MG, QD
     Route: 048
  5. PROPANOLOL                         /00030001/ [Concomitant]
     Active Substance: PROPRANOLOL HYDROCHLORIDE
     Indication: ANXIETY
     Dosage: 10 MG, PRN
     Route: 048
  6. DEXAMETHASONE. [Concomitant]
     Active Substance: DEXAMETHASONE
     Indication: PROPHYLAXIS OF NAUSEA AND VOMITING
     Dosage: 4 MG, PRN
     Route: 048
  7. HYDROMORPHONE [Concomitant]
     Active Substance: HYDROMORPHONE
     Indication: PAIN
     Dosage: 2 MG, PRN
     Route: 048
  8. NORCO [Concomitant]
     Active Substance: ACETAMINOPHEN\HYDROCODONE BITARTRATE
     Indication: TUMOUR PAIN
     Dosage: 2 DF, PRN
     Route: 048
  9. ONDANSETRON [Concomitant]
     Active Substance: ONDANSETRON
     Indication: PROPHYLAXIS OF NAUSEA AND VOMITING
     Dosage: 4 MG, PRN
     Route: 048
  10. ZENPEP [Concomitant]
     Active Substance: PANCRELIPASE AMYLASE\PANCRELIPASE LIPASE\PANCRELIPASE PROTEASE
     Indication: PANCREATIC FAILURE
     Dosage: 2 DF, QD
     Route: 048
  11. NIRAPARIB [Suspect]
     Active Substance: NIRAPARIB
     Indication: NEOPLASM
     Dosage: 300 MG, QD
     Route: 048
     Dates: start: 20180611
  12. NIRAPARIB [Suspect]
     Active Substance: NIRAPARIB
     Dosage: 200 MG, QD
     Route: 048
     Dates: start: 20180629, end: 20180707
  13. LORAZEPAM. [Concomitant]
     Active Substance: LORAZEPAM
     Indication: ANXIETY
     Dosage: 1 MG, PRN
     Route: 048
  14. MORPHINE [Concomitant]
     Active Substance: MORPHINE
     Indication: TUMOUR PAIN
     Dosage: 15 MG, BID
     Route: 048
  15. OMEPRAZOLE. [Concomitant]
     Active Substance: OMEPRAZOLE
     Indication: GASTROOESOPHAGEAL REFLUX DISEASE
     Dosage: 40 MG, QD
     Route: 048
  16. RIVAROXABAN [Concomitant]
     Active Substance: RIVAROXABAN
     Indication: PULMONARY EMBOLISM
     Dosage: 20 MG, QD
     Route: 048

REACTIONS (1)
  - Pyrexia [Recovered/Resolved]

NARRATIVE: CASE EVENT DATE: 20180704
